FAERS Safety Report 9546668 (Version 1)
Quarter: 2013Q3

REPORT INFORMATION
  Report Type: Spontaneous
  Country: US (occurrence: US)
  Receive Date: 20130924
  Receipt Date: 20130924
  Transmission Date: 20140515
  Serious: No
  Sender: FDA-Public Use
  Company Number: US-BIOGENIDEC-2013BI087268

PATIENT
  Age: 24 Year
  Sex: Female

DRUGS (2)
  1. AVONEX [Suspect]
     Indication: MULTIPLE SCLEROSIS
     Route: 030
     Dates: start: 20040419, end: 2005
  2. COPAXONE [Concomitant]
     Dates: start: 2005, end: 2006

REACTIONS (4)
  - Mania [Recovered/Resolved]
  - Mental impairment [Recovered/Resolved]
  - Drug dose omission [Recovered/Resolved]
  - Anxiety [Recovered/Resolved]
